FAERS Safety Report 9139843 (Version 1)
Quarter: 2013Q1

REPORT INFORMATION
  Report Type: Spontaneous
  Country: SE (occurrence: SE)
  Receive Date: 20130305
  Receipt Date: 20130305
  Transmission Date: 20140127
  Serious: Yes (Death, Hospitalization)
  Sender: FDA-Public Use
  Company Number: SE-JNJFOC-20130216632

PATIENT
  Age: 78 Year
  Sex: Male

DRUGS (8)
  1. REMICADE [Suspect]
     Indication: RHEUMATOID ARTHRITIS
     Route: 042
     Dates: start: 20010515, end: 20050515
  2. ALVEDON [Concomitant]
     Route: 048
  3. FOLACIN [Concomitant]
     Route: 048
  4. BEHEPAN [Concomitant]
     Route: 048
  5. BRUFEN [Concomitant]
     Route: 048
  6. PREDNISOLON [Concomitant]
     Route: 048
  7. METHOTREXATE [Concomitant]
     Route: 048
  8. CALCICHEW-D3 CITRON [Concomitant]
     Dosage: DOSE: 500 MG/400 IU
     Route: 048

REACTIONS (3)
  - Lymphoma [Fatal]
  - Leukopenia [Fatal]
  - Systemic lupus erythematosus [Fatal]
